FAERS Safety Report 8151067-9 (Version None)
Quarter: 2012Q1

REPORT INFORMATION
  Report Type: 
  Country: None (occurrence: None)
  Receive Date: 20120220
  Receipt Date: 20120210
  Transmission Date: 20120608
  Serious: Yes (Hospitalization, Other)
  Sender: FDA-Public Use
  Company Number: US-MERCK-1110USA00795

PATIENT
  Age: 78 Year
  Sex: Female

DRUGS (5)
  1. VITAMIN D (UNSPECIFIED) [Concomitant]
     Route: 048
     Dates: start: 20040101
  2. ALENDRONATE SODIUM [Suspect]
     Indication: OSTEOPOROSIS
     Route: 048
     Dates: start: 20080501, end: 20100801
  3. CALCIUM (UNSPECIFIED) [Concomitant]
     Route: 065
     Dates: start: 20040101
  4. FOSAMAX [Suspect]
     Indication: OSTEOPOROSIS
     Route: 048
     Dates: start: 20000301, end: 20080201
  5. FOSAMAX [Suspect]
     Route: 048
     Dates: start: 20100901, end: 20101101

REACTIONS (10)
  - BLOOD CHOLESTEROL INCREASED [None]
  - FALL [None]
  - URINARY TRACT INFECTION [None]
  - GALLBLADDER DISORDER [None]
  - OEDEMA PERIPHERAL [None]
  - CATARACT [None]
  - TOOTH DISORDER [None]
  - FEMUR FRACTURE [None]
  - HYPERTENSION [None]
  - DENTAL CARIES [None]
